FAERS Safety Report 7540732-X (Version None)
Quarter: 2011Q2

REPORT INFORMATION
  Report Type: 
  Country: None (occurrence: None)
  Receive Date: 20110610
  Receipt Date: 20110530
  Transmission Date: 20111010
  Serious: Yes (Other)
  Sender: FDA-Public Use
  Company Number: JP-ROCHE-769051

PATIENT
  Sex: Male

DRUGS (15)
  1. RHEUMATREX [Suspect]
     Dosage: DOSAGE UNCERTAIN; ACTION TAKEN : DOSE DECREASED
     Route: 048
  2. ACTEMRA [Suspect]
     Route: 041
     Dates: start: 20091001
  3. PREDNISOLONE [Concomitant]
     Route: 048
     Dates: start: 20081126
  4. NAPROXEN [Concomitant]
     Route: 048
  5. PREDNISOLONE [Concomitant]
     Route: 048
     Dates: start: 20090202, end: 20090302
  6. SEMEN COICIS [Concomitant]
     Dosage: DRUG NAME: COIX SEED
     Route: 048
     Dates: end: 20090910
  7. ACTEMRA [Suspect]
     Dosage: DISCONTINUED
     Route: 041
     Dates: start: 20090402, end: 20090101
  8. SELBEX [Concomitant]
     Dosage: FORM:MINUTE GRAIN
     Route: 048
     Dates: end: 20080910
  9. SELBEX [Concomitant]
     Dosage: FORM: PERORAL AGENT
     Route: 048
  10. ACTEMRA [Suspect]
     Route: 041
     Dates: start: 20080813, end: 20090303
  11. PREDNISOLONE [Concomitant]
     Route: 048
     Dates: end: 20081125
  12. PREDNISOLONE [Concomitant]
     Route: 048
     Dates: start: 20081126, end: 20090107
  13. PREDNISOLONE [Concomitant]
     Route: 048
     Dates: start: 20090303
  14. RHEUMATREX [Suspect]
     Route: 048
     Dates: end: 20090101
  15. PREDNISOLONE [Concomitant]
     Route: 048
     Dates: start: 20090108, end: 20090201

REACTIONS (2)
  - ARTHRITIS [None]
  - HEPATIC FUNCTION ABNORMAL [None]
